FAERS Safety Report 6146017-0 (Version None)
Quarter: 2009Q2

REPORT INFORMATION
  Report Type: 
  Country: None (occurrence: None)
  Receive Date: 20090406
  Receipt Date: 20090406
  Transmission Date: 20091009
  Serious: Yes (Hospitalization)
  Sender: FDA-Public Use
  Company Number: None

PATIENT
  Sex: Female
  Weight: 63.9572 kg

DRUGS (2)
  1. LEVAQUIN [Suspect]
     Indication: BRONCHITIS
     Dosage: 1 DAILY ORAL
     Route: 048
     Dates: start: 20090309
  2. LEVAQUIN [Suspect]
     Indication: MULTIPLE ALLERGIES
     Dosage: 1 DAILY ORAL
     Route: 048
     Dates: start: 20090309

REACTIONS (5)
  - BLOOD PRESSURE INCREASED [None]
  - CEREBROVASCULAR ACCIDENT [None]
  - FEAR [None]
  - HEART RATE INCREASED [None]
  - PARAESTHESIA [None]
